FAERS Safety Report 4680461-3 (Version None)
Quarter: 2005Q2

REPORT INFORMATION
  Report Type: 
  Country: None (occurrence: None)
  Receive Date: 20050602
  Receipt Date: 20050506
  Transmission Date: 20051028
  Serious: Yes (Hospitalization)
  Sender: FDA-Public Use
  Company Number: CM-MERCK-0505USA00814

PATIENT
  Age: 22 Year
  Sex: Male

DRUGS (1)
  1. STROMECTOL [Suspect]
     Route: 048
     Dates: start: 20050503, end: 20050503

REACTIONS (5)
  - ASTHENIA [None]
  - COMA [None]
  - CONJUNCTIVAL HAEMORRHAGE [None]
  - PAIN [None]
  - URINARY RETENTION [None]
